FAERS Safety Report 19087770 (Version 1)
Quarter: 2021Q2

REPORT INFORMATION
  Report Type: Spontaneous
  Country: US (occurrence: US)
  Receive Date: 20210402
  Receipt Date: 20210402
  Transmission Date: 20210717
  Serious: Yes (Other)
  Sender: FDA-Public Use
  Company Number: None

PATIENT
  Age: 55 Year
  Sex: Female
  Weight: 113 kg

DRUGS (3)
  1. BAMLANIVIMAB?ETESEVIMAB COVID?19 EUA [Suspect]
     Active Substance: BAMLANIVIMAB\ETESEVIMAB
     Indication: CORONAVIRUS INFECTION
     Dosage: ?          OTHER FREQUENCY:ONCE;?
     Route: 042
     Dates: start: 20210402, end: 20210402
  2. ETESEVIMAB. [Suspect]
     Active Substance: ETESEVIMAB
     Dosage: ?          OTHER FREQUENCY:ONCE;?
     Route: 042
     Dates: start: 20210402, end: 20210402
  3. SODIUM CHLORIDE 0.9 % [Concomitant]
     Dates: start: 20210402, end: 20210402

REACTIONS (3)
  - Infusion related reaction [None]
  - Pruritus [None]
  - Hypersensitivity [None]

NARRATIVE: CASE EVENT DATE: 20210402
